FAERS Safety Report 9692279 (Version 1)
Quarter: 2013Q4

REPORT INFORMATION
  Report Type: Spontaneous
  Country: US (occurrence: US)
  Receive Date: 20131118
  Receipt Date: 20131118
  Transmission Date: 20140711
  Serious: Yes (Death)
  Sender: FDA-Public Use
  Company Number: US-ROCHE-1304528

PATIENT
  Age: 63 Year
  Sex: Female

DRUGS (15)
  1. XOLAIR [Suspect]
     Indication: ASTHMA
     Route: 058
  2. ACTOS [Concomitant]
     Route: 065
  3. ADVAIR DISKUS [Concomitant]
  4. ALLEGRA [Concomitant]
     Route: 065
  5. CALTRATE [Concomitant]
     Route: 065
  6. HYDROCHLOROTHIAZIDE [Concomitant]
     Route: 065
  7. JANUVIA [Concomitant]
     Route: 065
  8. ASPIRIN [Concomitant]
     Route: 065
  9. NEXIUM [Concomitant]
     Route: 065
  10. PROAIR (UNITED STATES) [Concomitant]
     Route: 065
  11. SINGULAIR [Concomitant]
     Route: 065
  12. SPIRIVA [Concomitant]
     Route: 065
  13. SYNTHROID [Concomitant]
     Route: 065
  14. WELLBUTRIN [Concomitant]
     Route: 065
  15. ZETIA [Concomitant]
     Route: 065

REACTIONS (1)
  - Death [Fatal]
